FAERS Safety Report 8005783-X (Version None)
Quarter: 2011Q4

REPORT INFORMATION
  Report Type: 
  Country: None (occurrence: None)
  Receive Date: 20111223
  Receipt Date: 20111216
  Transmission Date: 20120403
  Serious: Yes (Hospitalization, Other)
  Sender: FDA-Public Use
  Company Number: US-VERTEX PHARMACEUTICALS INC.-AE-2011-000286

PATIENT
  Sex: Female
  Weight: 45.854 kg

DRUGS (7)
  1. PROCRIT [Concomitant]
     Route: 058
  2. ACYCLOVIR [Concomitant]
     Indication: ANTIVIRAL PROPHYLAXIS
     Route: 048
  3. VITAMIN D [Concomitant]
     Indication: NUTRITIONAL SUPPORT
     Route: 048
  4. COPEGUS [Suspect]
     Indication: HEPATITIS C
     Dosage: 400MG AM AND 600MG PM
     Route: 048
     Dates: start: 20110329, end: 20110608
  5. ESTRADIOL [Concomitant]
     Indication: HORMONE REPLACEMENT THERAPY
     Route: 048
  6. PEGASYS [Suspect]
     Indication: HEPATITIS C
     Route: 058
     Dates: start: 20110329, end: 20110608
  7. VX-950 [Suspect]
     Indication: HEPATITIS C
     Route: 048
     Dates: start: 20110329, end: 20110608

REACTIONS (4)
  - ANGIOMYOLIPOMA [None]
  - THROMBOCYTOPENIA [None]
  - ANAEMIA [None]
  - PYREXIA [None]
